FAERS Safety Report 12633241 (Version 2)
Quarter: 2016Q3

REPORT INFORMATION
  Report Type: Spontaneous
  Country: US (occurrence: US)
  Receive Date: 20160808
  Receipt Date: 20160808
  Transmission Date: 20161109
  Serious: No
  Sender: FDA-Public Use
  Company Number: US-BEH-2016059900

PATIENT
  Age: 61 Year
  Sex: Female
  Weight: 56 kg

DRUGS (20)
  1. ACETAMINOPHEN. [Concomitant]
     Active Substance: ACETAMINOPHEN
  2. LIDOCAINE. [Concomitant]
     Active Substance: LIDOCAINE
  3. EPIPEN [Concomitant]
     Active Substance: EPINEPHRINE
  4. ADVAIR HFA [Concomitant]
     Active Substance: FLUTICASONE PROPIONATE\SALMETEROL XINAFOATE
  5. ZITHROMAX [Concomitant]
     Active Substance: AZITHROMYCIN DIHYDRATE
  6. SPIRIVA [Concomitant]
     Active Substance: TIOTROPIUM BROMIDE MONOHYDRATE
  7. POTASSIUM [Concomitant]
     Active Substance: POTASSIUM
  8. PROMETHAZINE [Concomitant]
     Active Substance: PROMETHAZINE\PROMETHAZINE HYDROCHLORIDE
  9. VESICARE [Concomitant]
     Active Substance: SOLIFENACIN SUCCINATE
  10. AUGMENTIN [Concomitant]
     Active Substance: AMOXICILLIN\CLAVULANATE POTASSIUM
  11. FLONASE [Concomitant]
     Active Substance: FLUTICASONE PROPIONATE
  12. ACTONEL [Concomitant]
     Active Substance: RISEDRONATE SODIUM
  13. LEXAPRO [Concomitant]
     Active Substance: ESCITALOPRAM OXALATE
  14. HIZENTRA [Suspect]
     Active Substance: HUMAN IMMUNOGLOBULIN G
     Indication: IMMUNODEFICIENCY
     Route: 058
  15. HIZENTRA [Suspect]
     Active Substance: HUMAN IMMUNOGLOBULIN G
     Route: 058
  16. HIZENTRA [Suspect]
     Active Substance: HUMAN IMMUNOGLOBULIN G
     Route: 058
     Dates: start: 20140130
  17. SINGULAIR [Concomitant]
     Active Substance: MONTELUKAST SODIUM
  18. MEDROL [Concomitant]
     Active Substance: METHYLPREDNISOLONE
  19. DIPHENHYDRAMINE. [Concomitant]
     Active Substance: DIPHENHYDRAMINE
  20. NEXIUM [Concomitant]
     Active Substance: ESOMEPRAZOLE MAGNESIUM

REACTIONS (1)
  - Viral infection [Unknown]

NARRATIVE: CASE EVENT DATE: 201512
